FAERS Safety Report 17961851 (Version 1)
Quarter: 2020Q2

REPORT INFORMATION
  Report Type: Spontaneous
  Country: US (occurrence: US)
  Receive Date: 20200629
  Receipt Date: 20200629
  Transmission Date: 20200714
  Serious: No
  Sender: FDA-Public Use
  Company Number: None

PATIENT
  Age: 38 Year
  Sex: Male
  Weight: 102.51 kg

DRUGS (1)
  1. ADALIMUMAB (ADALIMUMAB 40MG/0.8ML INJ, PEN, KIT) [Suspect]
     Active Substance: ADALIMUMAB
     Indication: PSORIATIC ARTHROPATHY
     Dosage: ?          OTHER FREQUENCY:UNKNOWN;?
     Route: 058
     Dates: start: 20170330

REACTIONS (5)
  - Depressed level of consciousness [None]
  - Syncope [None]
  - Heart rate decreased [None]
  - Immediate post-injection reaction [None]
  - Loss of consciousness [None]

NARRATIVE: CASE EVENT DATE: 20191220
